FAERS Safety Report 8571928-6 (Version None)
Quarter: 2012Q3

REPORT INFORMATION
  Report Type: 
  Country: None (occurrence: None)
  Receive Date: 20120806
  Receipt Date: 20120731
  Transmission Date: 20120928
  Serious: Yes (Other)
  Sender: FDA-Public Use
  Company Number: FR-PFIZER INC-2012187617

PATIENT
  Age: 63 Year
  Sex: Female

DRUGS (3)
  1. MEDROL [Concomitant]
     Indication: CEREBRAL DISORDER
     Dosage: 16 UNK, 1X/DAY
     Route: 048
     Dates: start: 20110101
  2. CRIZOTINIB [Suspect]
     Indication: BRONCHIAL CARCINOMA
     Dosage: 250 MG, 2X/DAY
     Dates: start: 20120601, end: 20120730
  3. ARIXTRA [Concomitant]
     Indication: THROMBOSIS
     Dosage: 5 UNK, 1X/DAY
     Route: 058
     Dates: start: 20110101

REACTIONS (1)
  - CYTOLYTIC HEPATITIS [None]
